FAERS Safety Report 5605605-8 (Version None)
Quarter: 2008Q1

REPORT INFORMATION
  Report Type: 
  Country: None (occurrence: None)
  Receive Date: 20080129
  Receipt Date: 20080123
  Transmission Date: 20080703
  Serious: Yes (Hospitalization)
  Sender: FDA-Public Use
  Company Number: CA-JNJFOC-20071108018

PATIENT
  Sex: Female
  Weight: 68.95 kg

DRUGS (56)
  1. REMICADE [Suspect]
     Route: 042
  2. REMICADE [Suspect]
     Route: 042
  3. REMICADE [Suspect]
     Route: 042
  4. REMICADE [Suspect]
     Route: 042
  5. REMICADE [Suspect]
     Route: 042
  6. REMICADE [Suspect]
     Route: 042
  7. REMICADE [Suspect]
     Route: 042
  8. REMICADE [Suspect]
     Route: 042
  9. REMICADE [Suspect]
     Route: 042
  10. REMICADE [Suspect]
     Route: 042
  11. REMICADE [Suspect]
     Route: 042
  12. REMICADE [Suspect]
     Route: 042
  13. REMICADE [Suspect]
     Route: 042
  14. REMICADE [Suspect]
     Route: 042
  15. REMICADE [Suspect]
     Route: 042
  16. REMICADE [Suspect]
     Route: 042
  17. REMICADE [Suspect]
     Route: 042
  18. REMICADE [Suspect]
     Route: 042
  19. REMICADE [Suspect]
     Route: 042
  20. REMICADE [Suspect]
     Route: 042
  21. REMICADE [Suspect]
     Route: 042
  22. REMICADE [Suspect]
     Route: 042
  23. REMICADE [Suspect]
     Route: 042
  24. REMICADE [Suspect]
     Route: 042
  25. REMICADE [Suspect]
     Route: 042
  26. REMICADE [Suspect]
     Route: 042
  27. REMICADE [Suspect]
     Route: 042
  28. REMICADE [Suspect]
     Route: 042
  29. REMICADE [Suspect]
     Route: 042
  30. REMICADE [Suspect]
     Route: 042
  31. REMICADE [Suspect]
     Route: 042
  32. REMICADE [Suspect]
     Route: 042
  33. REMICADE [Suspect]
     Route: 042
  34. REMICADE [Suspect]
     Route: 042
  35. REMICADE [Suspect]
     Route: 042
  36. REMICADE [Suspect]
     Route: 042
  37. REMICADE [Suspect]
     Route: 042
  38. REMICADE [Suspect]
     Route: 042
  39. REMICADE [Suspect]
     Route: 042
  40. REMICADE [Suspect]
     Route: 042
  41. REMICADE [Suspect]
     Route: 042
  42. REMICADE [Suspect]
     Route: 042
  43. REMICADE [Suspect]
     Route: 042
  44. REMICADE [Suspect]
     Route: 042
  45. REMICADE [Suspect]
     Route: 042
  46. REMICADE [Suspect]
     Route: 042
  47. REMICADE [Suspect]
     Route: 042
  48. REMICADE [Suspect]
     Route: 042
  49. REMICADE [Suspect]
     Indication: CROHN'S DISEASE
     Dosage: INITIAL INFUSION
     Route: 042
  50. GRAVOL TAB [Concomitant]
     Indication: PREMEDICATION
     Route: 048
  51. METHOTREXATE [Concomitant]
     Route: 030
  52. METHOTREXATE [Concomitant]
     Route: 030
  53. FOLIC ACID [Concomitant]
     Route: 048
  54. PANTOLOC [Concomitant]
     Route: 065
  55. VITAMIN B-12 [Concomitant]
     Route: 030
  56. PREDNISONE TAB [Concomitant]
     Route: 065

REACTIONS (2)
  - HOSPITALISATION [None]
  - INTESTINAL OBSTRUCTION [None]
